FAERS Safety Report 7127253-3 (Version None)
Quarter: 2010Q4

REPORT INFORMATION
  Report Type: 
  Country: None (occurrence: None)
  Receive Date: 20101129
  Receipt Date: 20100317
  Transmission Date: 20110411
  Serious: No
  Sender: FDA-Public Use
  Company Number: US-PFIZER INC-2010035250

PATIENT
  Sex: Male
  Weight: 97.506 kg

DRUGS (3)
  1. VIAGRA [Suspect]
     Indication: ERECTILE DYSFUNCTION
     Dosage: UNK
     Route: 048
     Dates: start: 20100301, end: 20100301
  2. AMOXICILLIN [Concomitant]
     Indication: OROPHARYNGEAL PAIN
     Dosage: UNK
  3. AMOXICILLIN [Concomitant]
     Indication: VIRAL INFECTION

REACTIONS (3)
  - MALAISE [None]
  - SELF ESTEEM DECREASED [None]
  - VOMITING [None]
